FAERS Safety Report 19876044 (Version 1)
Quarter: 2021Q3

REPORT INFORMATION
  Report Type: Spontaneous
  Country: CN (occurrence: CN)
  Receive Date: 20210924
  Receipt Date: 20210924
  Transmission Date: 20211014
  Serious: Yes (Life-Threatening, Other)
  Sender: FDA-Public Use
  Company Number: CN-JIANGSU HENGRUI MEDICINE CO., LTD.-2118748

PATIENT
  Age: 63 Year
  Sex: Female

DRUGS (7)
  1. METOCLOPRAMIDE. [Concomitant]
     Active Substance: METOCLOPRAMIDE
  2. ONDANSETRON [Concomitant]
     Active Substance: ONDANSETRON
     Route: 041
  3. IRINOTECAN HYDROCHLORIDE INJECTION, 20 MG/ML (2 ML AND 5 ML VIALS) (AN [Suspect]
     Active Substance: IRINOTECAN HYDROCHLORIDE
     Indication: OVARIAN CANCER
     Route: 041
     Dates: start: 20190314, end: 20190328
  4. OMEPRAZOLE. [Concomitant]
     Active Substance: OMEPRAZOLE
     Route: 048
  5. BEVACIZUMAB. [Suspect]
     Active Substance: BEVACIZUMAB
     Route: 041
     Dates: start: 20190314, end: 20190328
  6. PARACETAMOL [Suspect]
     Active Substance: ACETAMINOPHEN
  7. HYDROTALCITE [Concomitant]
     Active Substance: HYDROTALCITE
     Route: 048

REACTIONS (7)
  - Shock haemorrhagic [Recovered/Resolved]
  - Product use in unapproved indication [Unknown]
  - Oesophageal intramural haematoma [Recovered/Resolved]
  - Nausea [Unknown]
  - Upper gastrointestinal haemorrhage [Recovered/Resolved]
  - Decreased appetite [Unknown]
  - Vomiting [Unknown]

NARRATIVE: CASE EVENT DATE: 20190402
